FAERS Safety Report 26157047 (Version 2)
Quarter: 2025Q4

REPORT INFORMATION
  Report Type: Spontaneous
  Country: CN (occurrence: CN)
  Receive Date: 20251215
  Receipt Date: 20251222
  Transmission Date: 20260117
  Serious: Yes (Life-Threatening, Other)
  Sender: ACCORD
  Company Number: CN-Accord-517383

PATIENT
  Age: 55 Year
  Sex: Female

DRUGS (7)
  1. CARBOPLATIN [Suspect]
     Active Substance: CARBOPLATIN
     Indication: Ovarian epithelial cancer stage III
     Dates: start: 20210703, end: 2021
  2. PACLITAXEL [Suspect]
     Active Substance: PACLITAXEL
     Indication: Ovarian cancer stage III
     Dosage: DOSE-MODIFIED CHEMOTHERAPY
     Dates: start: 20210703, end: 2021
  3. CARBOPLATIN [Suspect]
     Active Substance: CARBOPLATIN
     Indication: Metastases to lymph nodes
     Dates: start: 20210703, end: 2021
  4. CARBOPLATIN [Suspect]
     Active Substance: CARBOPLATIN
     Indication: Mesenteric neoplasm
     Dates: start: 20210703, end: 2021
  5. PACLITAXEL [Suspect]
     Active Substance: PACLITAXEL
     Indication: Metastases to lymph nodes
     Dosage: DOSE-MODIFIED CHEMOTHERAPY
     Dates: start: 20210703, end: 2021
  6. PACLITAXEL [Suspect]
     Active Substance: PACLITAXEL
     Indication: Mesenteric neoplasm
     Dosage: DOSE-MODIFIED CHEMOTHERAPY
     Dates: start: 20210703, end: 2021
  7. PACLITAXEL [Suspect]
     Active Substance: PACLITAXEL
     Indication: Mesenteric neoplasm
     Dosage: DOSE-MODIFIED CHEMOTHERAPY
     Dates: start: 20210703, end: 2021

REACTIONS (5)
  - Thrombocytopenia [Recovering/Resolving]
  - Leukopenia [Unknown]
  - Granulocytopenia [Unknown]
  - Conjunctival haemorrhage [Unknown]
  - Haemorrhage [Unknown]

NARRATIVE: CASE EVENT DATE: 20210101
